FAERS Safety Report 21061855 (Version 1)
Quarter: 2022Q3

REPORT INFORMATION
  Report Type: Spontaneous
  Country: US (occurrence: US)
  Receive Date: 20220710
  Receipt Date: 20220710
  Transmission Date: 20221027
  Serious: No
  Sender: FDA-Public Use
  Company Number: US-009507513-2206USA005784

PATIENT
  Sex: Male

DRUGS (1)
  1. TICE BCG [Suspect]
     Active Substance: BACILLUS CALMETTE-GUERIN SUBSTRAIN TICE LIVE ANTIGEN
     Indication: Bladder cancer

REACTIONS (11)
  - Dermatitis [Unknown]
  - Erythema [Unknown]
  - Fear of disease [Unknown]
  - Insomnia [Unknown]
  - Skin lesion [Unknown]
  - Paraesthesia [Unknown]
  - Diarrhoea [Unknown]
  - Dizziness [Unknown]
  - Vomiting [Unknown]
  - Exposure via skin contact [Unknown]
  - Accidental exposure to product [Unknown]

NARRATIVE: CASE EVENT DATE: 20220101
